FAERS Safety Report 26081980 (Version 1)
Quarter: 2025Q4

REPORT INFORMATION
  Report Type: Spontaneous
  Country: US (occurrence: US)
  Receive Date: 20251124
  Receipt Date: 20251124
  Transmission Date: 20260118
  Serious: No
  Sender: ALEXION PHARMACEUTICALS
  Company Number: US-PROCTER+GAMBLE-PH25019246

PATIENT
  Age: 76 Year
  Sex: Female

DRUGS (2)
  1. PRILOSEC OTC [Suspect]
     Active Substance: OMEPRAZOLE MAGNESIUM
     Indication: Dyspepsia
     Dosage: 1 TABLET, MORNING, STARTED 3 OR 4 YEARS AGO
     Dates: end: 202510
  2. PRILOSEC OTC [Suspect]
     Active Substance: OMEPRAZOLE MAGNESIUM
     Indication: Gastrooesophageal reflux disease

REACTIONS (8)
  - Chromaturia [Not Recovered/Not Resolved]
  - Headache [Recovering/Resolving]
  - Diarrhoea [Not Recovered/Not Resolved]
  - Lip exfoliation [Recovering/Resolving]
  - Arthralgia [Unknown]
  - Salivary hypersecretion [Unknown]
  - Nocturia [Unknown]
  - Product use in unapproved indication [Unknown]

NARRATIVE: CASE EVENT DATE: 20240101
